FAERS Safety Report 5936236-8 (Version None)
Quarter: 2008Q4

REPORT INFORMATION
  Report Type: 
  Country: None (occurrence: None)
  Receive Date: 20081030
  Receipt Date: 20080220
  Transmission Date: 20090506
  Serious: No
  Sender: FDA-Public Use
  Company Number: A0706386A

PATIENT
  Age: 72 Year
  Sex: Female
  Weight: 60 kg

DRUGS (4)
  1. SEREVENT [Suspect]
     Indication: CHRONIC OBSTRUCTIVE PULMONARY DISEASE
     Dosage: 1PUFF TWICE PER DAY
     Route: 055
     Dates: start: 20071201, end: 20071201
  2. ATROVENT [Concomitant]
  3. CELEBREX [Concomitant]
  4. AEROBID [Concomitant]

REACTIONS (4)
  - GLOSSITIS [None]
  - ORAL CANDIDIASIS [None]
  - STOMATITIS [None]
  - THROAT IRRITATION [None]
